FAERS Safety Report 8863353 (Version 3)
Quarter: 2016Q1

REPORT INFORMATION
  Report Type: Spontaneous
  Country: JP (occurrence: JP)
  Receive Date: 20121025
  Receipt Date: 20160111
  Transmission Date: 20160526
  Serious: Yes (Other)
  Sender: FDA-Public Use
  Company Number: JP-GLAXOSMITHKLINE-B0837637A

PATIENT
  Age: 74 Year
  Sex: Male

DRUGS (5)
  1. ROPINIROLE HYDROCHLORIDE. [Suspect]
     Active Substance: ROPINIROLE HYDROCHLORIDE
     Indication: PARKINSON^S DISEASE
     Route: 048
     Dates: start: 20121001, end: 20121007
  2. ROPINIROLE HYDROCHLORIDE. [Suspect]
     Active Substance: ROPINIROLE HYDROCHLORIDE
     Route: 048
     Dates: start: 20121008
  3. VESICARE [Concomitant]
     Active Substance: SOLIFENACIN SUCCINATE
     Route: 048
  4. PLETAAL [Concomitant]
     Active Substance: CILOSTAZOL
     Route: 048
  5. DONEPEZIL HYDROCHLORIDE. [Concomitant]
     Active Substance: DONEPEZIL HYDROCHLORIDE
     Route: 048

REACTIONS (3)
  - Gait disturbance [Recovered/Resolved]
  - Gait disturbance [Recovered/Resolved]
  - Dysstasia [Unknown]

NARRATIVE: CASE EVENT DATE: 20121004
